FAERS Safety Report 7464846-8 (Version None)
Quarter: 2011Q2

REPORT INFORMATION
  Report Type: 
  Country: None (occurrence: None)
  Receive Date: 20110509
  Receipt Date: 20080828
  Transmission Date: 20111010
  Serious: Yes (Other)
  Sender: FDA-Public Use
  Company Number: US-BAYER-201031093NA

PATIENT
  Age: 49 Year
  Sex: Male
  Weight: 88 kg

DRUGS (80)
  1. TRASYLOL [Suspect]
     Indication: THROMBECTOMY
     Dosage: SOLUTION FOR INFUSION
     Route: 042
     Dates: start: 20000710, end: 20000710
  2. TRASYLOL [Suspect]
     Indication: HEART TRANSPLANT
     Dosage: 1 ML TEST DOSE, UNK
     Route: 042
     Dates: start: 20000709
  3. TRASYLOL [Suspect]
     Indication: MEDICAL DEVICE REMOVAL
     Dosage: 100 ML LOADING DOSE, UNK
     Route: 042
     Dates: start: 20000709
  4. FOLIC ACID [Concomitant]
     Indication: PRODUCT USED FOR UNKNOWN INDICATION
     Dosage: 1 MG, QD
     Route: 048
     Dates: end: 20000216
  5. DOBUTAMINE HYDROCHLORIDE [Concomitant]
     Indication: PRODUCT USED FOR UNKNOWN INDICATION
     Dosage: RENAL DOSE
     Route: 042
     Dates: start: 20000215, end: 20000215
  6. VITAMIN E [Concomitant]
     Indication: PRODUCT USED FOR UNKNOWN INDICATION
     Dosage: UNK
     Route: 048
  7. ZOLOFT [Concomitant]
     Indication: PRODUCT USED FOR UNKNOWN INDICATION
     Dosage: 50 MG, QD
     Route: 048
     Dates: start: 20000418
  8. DEPAKOTE [Concomitant]
     Indication: PRODUCT USED FOR UNKNOWN INDICATION
     Dosage: 250-500 MG BID
     Route: 048
     Dates: start: 20000411
  9. FLAGYL [Concomitant]
     Indication: PRODUCT USED FOR UNKNOWN INDICATION
     Dosage: 250 MG, TID
     Route: 048
     Dates: start: 20000531
  10. BLOOD AND RELATED PRODUCTS [Concomitant]
     Indication: PRODUCT USED FOR UNKNOWN INDICATION
     Dosage: UNK
     Route: 042
     Dates: start: 20000216
  11. LEVOPHED [Concomitant]
     Dosage: UNK
     Route: 042
     Dates: start: 20000709
  12. PHENYLEPHRINE HCL [Concomitant]
     Indication: PRODUCT USED FOR UNKNOWN INDICATION
     Dosage: UNK
     Route: 042
     Dates: start: 20000709
  13. SOLU-MEDROL [Concomitant]
     Indication: PRODUCT USED FOR UNKNOWN INDICATION
     Dosage: 1500 MG, UNK
     Route: 042
     Dates: start: 20000709
  14. HESPAN IN EXCEL PLASTIC CONTAINER [Concomitant]
     Indication: PRODUCT USED FOR UNKNOWN INDICATION
     Dosage: 300 ML, UNK
     Route: 042
     Dates: start: 20000709
  15. TRASYLOL [Suspect]
  16. SULFASALAZINE [Concomitant]
     Indication: PRODUCT USED FOR UNKNOWN INDICATION
     Dosage: 500 MG/2 TABLETS TID
     Route: 048
     Dates: end: 20000216
  17. VASOTEC [Concomitant]
     Indication: PRODUCT USED FOR UNKNOWN INDICATION
     Dosage: 20 MG, BID
     Dates: start: 20000223
  18. SULFATRIM-DS [Concomitant]
     Indication: PRODUCT USED FOR UNKNOWN INDICATION
     Dosage: 1 DF, BID
     Route: 048
  19. TRAZODONE [Concomitant]
     Indication: PRODUCT USED FOR UNKNOWN INDICATION
     Dosage: 25 MG, HS
     Route: 048
     Dates: start: 20000413
  20. LOSARTAN [Concomitant]
     Indication: PRODUCT USED FOR UNKNOWN INDICATION
     Dosage: 25 MG, QD
     Route: 048
     Dates: start: 20000625
  21. RED BLOOD CELLS [Concomitant]
     Dosage: 3 U, UNK
     Route: 042
     Dates: start: 20000709
  22. FRESH FROZEN PLASMA [Concomitant]
     Indication: PRODUCT USED FOR UNKNOWN INDICATION
     Dosage: UNK
     Route: 042
     Dates: start: 20000216
  23. NITROGLYCERIN [Concomitant]
     Indication: PRODUCT USED FOR UNKNOWN INDICATION
     Dosage: UNK
     Dates: start: 20000216
  24. LOTENSIN [Concomitant]
     Indication: PRODUCT USED FOR UNKNOWN INDICATION
     Dosage: 10 MG, BID
     Route: 048
     Dates: end: 20000215
  25. LASIX [Concomitant]
     Indication: PRODUCT USED FOR UNKNOWN INDICATION
     Dosage: 80 MG, BID
     Route: 048
     Dates: end: 20000215
  26. DOBUTAMINE HYDROCHLORIDE [Concomitant]
     Dosage: UNK
     Route: 042
     Dates: start: 20000709
  27. COUMADIN [Concomitant]
     Dosage: UNK
     Route: 048
     Dates: end: 20000215
  28. VANCOMYCIN [Concomitant]
     Indication: PRODUCT USED FOR UNKNOWN INDICATION
     Dosage: UNK
     Route: 042
     Dates: start: 20000215
  29. ZAROXOLYN [Concomitant]
     Indication: PRODUCT USED FOR UNKNOWN INDICATION
     Dosage: 2.5 MG, QD
  30. AMBIEN [Concomitant]
     Indication: PRODUCT USED FOR UNKNOWN INDICATION
     Dosage: 5 MG, HS IF NEEDED
     Route: 048
  31. XANAX [Concomitant]
     Indication: PRODUCT USED FOR UNKNOWN INDICATION
     Dosage: 0.5 MG, BID
     Route: 048
     Dates: start: 20000409
  32. LABETALOL [Concomitant]
     Indication: PRODUCT USED FOR UNKNOWN INDICATION
     Dosage: 100 MG, BID
     Route: 048
     Dates: start: 20000703
  33. ASACOL [Concomitant]
     Indication: PRODUCT USED FOR UNKNOWN INDICATION
     Dosage: 800 MG, QID
     Route: 048
     Dates: start: 20000614
  34. HEPARIN [Concomitant]
     Dosage: 55000 U, UNK
     Route: 042
     Dates: start: 20000709
  35. CALCIUM CHLORIDE [Concomitant]
     Indication: PRODUCT USED FOR UNKNOWN INDICATION
     Dosage: 1 G, UNK
     Dates: start: 20000216
  36. EPINEPHRINE [Concomitant]
     Indication: PRODUCT USED FOR UNKNOWN INDICATION
     Dosage: UNK
     Route: 042
     Dates: start: 20000709
  37. VERSED [Concomitant]
     Indication: PRODUCT USED FOR UNKNOWN INDICATION
     Dosage: 3 MG, UNK
     Route: 042
     Dates: start: 20000709
  38. TRASYLOL [Suspect]
     Indication: VENTRICULAR ASSIST DEVICE INSERTION
     Dosage: SOLUTION FOR INFUSION
     Route: 042
     Dates: start: 20000216
  39. TRASYLOL [Suspect]
     Indication: STERNOTOMY
     Dosage: SOLUTION FOR INFUSION
     Route: 042
     Dates: start: 20000217
  40. PEPCID [Concomitant]
     Indication: PRODUCT USED FOR UNKNOWN INDICATION
     Dosage: 20 MG, BID
     Route: 042
     Dates: start: 20000215, end: 20000530
  41. PRIMACOR [Concomitant]
     Dosage: UNK
     Route: 042
     Dates: start: 20000709
  42. COUMADIN [Concomitant]
     Indication: PULMONARY EMBOLISM
     Dosage: UNK
     Route: 048
     Dates: start: 20001201
  43. FIBERCON [Concomitant]
     Indication: PRODUCT USED FOR UNKNOWN INDICATION
     Dosage: UNK UNK, PRN
     Route: 048
  44. ANCEF [Concomitant]
     Indication: PRODUCT USED FOR UNKNOWN INDICATION
     Dosage: 1 G, UNK
     Route: 042
     Dates: start: 20000509, end: 20000509
  45. FENTANYL [Concomitant]
     Indication: PRODUCT USED FOR UNKNOWN INDICATION
     Dosage: 10 ML, UNK
     Dates: start: 20000216
  46. ETOMIDATE [Concomitant]
     Indication: PRODUCT USED FOR UNKNOWN INDICATION
     Dosage: UNK
     Route: 042
     Dates: start: 20000709
  47. ACETYLSALICYLIC ACID SRT [Concomitant]
     Indication: PRODUCT USED FOR UNKNOWN INDICATION
     Dosage: 81 MG, QD
     Route: 048
     Dates: end: 20000216
  48. PREVACID [Concomitant]
     Indication: PRODUCT USED FOR UNKNOWN INDICATION
     Dosage: 30 MG, UNK
     Route: 048
     Dates: end: 20000215
  49. LIPITOR [Concomitant]
     Indication: PRODUCT USED FOR UNKNOWN INDICATION
     Dosage: 20 MG, QD
     Dates: end: 20000216
  50. PRIMACOR [Concomitant]
     Indication: PRODUCT USED FOR UNKNOWN INDICATION
     Dosage: 0.375 MCG/KG/MINUTE
     Route: 042
     Dates: start: 20000215, end: 20000216
  51. INSULIN [Concomitant]
     Indication: PRODUCT USED FOR UNKNOWN INDICATION
     Dosage: UNK VARYING DOSES
     Route: 058
  52. TOPROL-XL [Concomitant]
     Indication: PRODUCT USED FOR UNKNOWN INDICATION
     Dosage: 25 MG, UNK
     Route: 048
  53. PLATELETS [Concomitant]
     Indication: PRODUCT USED FOR UNKNOWN INDICATION
     Dosage: 1 U, UNK
     Route: 042
     Dates: start: 20000216
  54. PROTAMINE SULFATE [Concomitant]
     Indication: PRODUCT USED FOR UNKNOWN INDICATION
     Dosage: 450 MG, UNK
     Route: 042
     Dates: start: 20000709
  55. TRASYLOL [Suspect]
     Dosage: 25 ML, Q1HR
     Route: 042
     Dates: start: 20000709
  56. DOPAMINE HCL [Concomitant]
     Dosage: UNK
     Route: 042
     Dates: start: 20000709
  57. VANCOMYCIN [Concomitant]
     Dosage: 3 G, UNK
     Route: 061
     Dates: start: 20000216
  58. KEFLEX [Concomitant]
     Indication: PRODUCT USED FOR UNKNOWN INDICATION
     Dosage: 500 MG, QID
     Route: 048
     Dates: start: 20000509, end: 20000522
  59. DEPAKOTE [Concomitant]
     Dosage: 500 MG/ 1 IN AM, 2 IN PM
     Route: 048
     Dates: start: 20000515
  60. BACITRACIN [Concomitant]
     Indication: PRODUCT USED FOR UNKNOWN INDICATION
     Dosage: 50000 U, UNK
     Dates: start: 20000216
  61. HEPARIN [Concomitant]
     Indication: PRODUCT USED FOR UNKNOWN INDICATION
     Dosage: 30000 U, CELL SAVER UNK
     Dates: start: 20000216
  62. RED BLOOD CELLS [Concomitant]
     Indication: PRODUCT USED FOR UNKNOWN INDICATION
     Dosage: 3 U, UNK
     Route: 042
     Dates: start: 20000216
  63. LACTATED RINGER'S [Concomitant]
     Indication: PRODUCT USED FOR UNKNOWN INDICATION
     Dosage: 1800 ML, UNK
     Route: 042
     Dates: start: 20000709
  64. ALBUMIN (HUMAN) [Concomitant]
     Indication: PRODUCT USED FOR UNKNOWN INDICATION
     Dosage: 250 ML, UNK
     Route: 042
     Dates: start: 20000709
  65. SODIUM PENTATHOL [Concomitant]
     Indication: PRODUCT USED FOR UNKNOWN INDICATION
     Dosage: UNK
     Route: 042
     Dates: start: 20000709
  66. DOPAMINE HCL [Concomitant]
     Indication: PRODUCT USED FOR UNKNOWN INDICATION
     Dosage: VARYING
     Route: 042
     Dates: start: 20000215, end: 20000224
  67. ENALAPRIL [Concomitant]
     Indication: PRODUCT USED FOR UNKNOWN INDICATION
     Dosage: 2.5 MG, QID
     Route: 042
     Dates: start: 20000218
  68. LOMOTIL [DIPHENOXYLATE HYDROCHLORIDE] [Concomitant]
     Indication: PRODUCT USED FOR UNKNOWN INDICATION
     Dosage: 1 DF Q2-4HR, PRN
     Route: 048
     Dates: start: 20000527
  69. RESTORIL [Concomitant]
     Indication: PRODUCT USED FOR UNKNOWN INDICATION
     Dosage: 15 MG HS, PRN
     Route: 048
     Dates: start: 20000409, end: 20000411
  70. ATIVAN [Concomitant]
     Dosage: UNK
     Route: 042
     Dates: start: 20000315
  71. CARDIZEM CD [Concomitant]
     Indication: PRODUCT USED FOR UNKNOWN INDICATION
     Dosage: 240 MG, QD
     Route: 048
     Dates: start: 20000320
  72. TISSEEL KIT [Concomitant]
     Indication: PRODUCT USED FOR UNKNOWN INDICATION
     Dosage: UNK
  73. CALCIUM CHLORIDE [Concomitant]
     Dosage: 500 MG, UNK
     Route: 042
     Dates: start: 20000709, end: 20000709
  74. LEVOPHED [Concomitant]
     Indication: PRODUCT USED FOR UNKNOWN INDICATION
     Dosage: UNK
     Dates: start: 20000216
  75. FENTANYL [Concomitant]
     Dosage: 29 ML, UNK
     Route: 042
     Dates: start: 20000709
  76. CONTRAST MEDIA [Concomitant]
     Indication: CATHETERISATION CARDIAC
     Dosage: 75 ML, UNK
     Dates: start: 20000215
  77. AMIODARONE [Concomitant]
     Indication: PRODUCT USED FOR UNKNOWN INDICATION
     Dosage: 1 MG/MIN BOLUS/DRIP
     Dates: start: 20000215, end: 20000216
  78. ATIVAN [Concomitant]
     Indication: PRODUCT USED FOR UNKNOWN INDICATION
     Dosage: 0.5-1 MG Q4HR PRN
     Dates: start: 20000327
  79. PLATELETS [Concomitant]
     Dosage: 2 U, UNK
     Route: 042
     Dates: start: 20000709
  80. FRESH FROZEN PLASMA [Concomitant]
     Dosage: 4 U, UNK
     Route: 042

REACTIONS (13)
  - DIABETES MELLITUS [None]
  - COLITIS ULCERATIVE [None]
  - ANXIETY [None]
  - QUALITY OF LIFE DECREASED [None]
  - SLEEP APNOEA SYNDROME [None]
  - BLINDNESS [None]
  - EMOTIONAL DISTRESS [None]
  - STRESS [None]
  - FEAR [None]
  - PAIN [None]
  - MEMORY IMPAIRMENT [None]
  - UNEVALUABLE EVENT [None]
  - DEPRESSION [None]
